FAERS Safety Report 13344254 (Version 1)
Quarter: 2017Q1

REPORT INFORMATION
  Report Type: Spontaneous
  Country: US (occurrence: US)
  Receive Date: 20170317
  Receipt Date: 20170317
  Transmission Date: 20170428
  Serious: No
  Sender: FDA-Public Use
  Company Number: US-ASTRAZENECA-2017SE25403

PATIENT
  Age: 26998 Day
  Sex: Female
  Weight: 81.6 kg

DRUGS (1)
  1. PULMICORT FLEXHALER [Suspect]
     Active Substance: BUDESONIDE
     Indication: COUGH
     Dosage: TWO TIMES A DAY
     Route: 055
     Dates: start: 20161101

REACTIONS (7)
  - Cough [Unknown]
  - Off label use [Unknown]
  - Drug dose omission [Unknown]
  - Adverse event [Unknown]
  - Product use issue [Unknown]
  - Wrong technique in product usage process [Unknown]
  - Intentional product misuse [Unknown]

NARRATIVE: CASE EVENT DATE: 20161101
